FAERS Safety Report 4419697-5 (Version None)
Quarter: 2004Q3

REPORT INFORMATION
  Report Type: 
  Country: None (occurrence: None)
  Receive Date: 20040804
  Receipt Date: 20040721
  Transmission Date: 20050211
  Serious: Yes (Disabling)
  Sender: FDA-Public Use
  Company Number: FABR-10688

PATIENT
  Age: 24 Year
  Sex: Male
  Weight: 70 kg

DRUGS (1)
  1. FABRAZYME [Suspect]
     Indication: FABRY'S DISEASE
     Dosage: 1 MG/KG Q2WKS IV
     Route: 042
     Dates: start: 20000918

REACTIONS (7)
  - BLINDNESS [None]
  - CONJUNCTIVAL VASCULAR DISORDER [None]
  - CORNEAL NEOVASCULARISATION [None]
  - DISEASE PROGRESSION [None]
  - EMBOLISM [None]
  - FABRY'S DISEASE [None]
  - VISUAL ACUITY REDUCED [None]
